FAERS Safety Report 7750162-3 (Version None)
Quarter: 2011Q3

REPORT INFORMATION
  Report Type: 
  Country: None (occurrence: None)
  Receive Date: 20110914
  Receipt Date: 20110914
  Transmission Date: 20111222
  Serious: No
  Sender: FDA-Public Use
  Company Number: None

PATIENT
  Age: 75 Year
  Sex: Female
  Weight: 62.595 kg

DRUGS (1)
  1. CYMBALTA [Suspect]
     Indication: OSTEOARTHRITIS
     Dosage: 60 MG
     Route: 048
     Dates: start: 20110110, end: 20110911

REACTIONS (1)
  - HYPERHIDROSIS [None]
